FAERS Safety Report 15275834 (Version 4)
Quarter: 2019Q2

REPORT INFORMATION
  Report Type: Report from Study
  Country: CA (occurrence: CA)
  Receive Date: 20180814
  Receipt Date: 20190404
  Transmission Date: 20190711
  Serious: Yes (Hospitalization, Other)
  Sender: FDA-Public Use
  Company Number: CA-BRISTOL-MYERS SQUIBB COMPANY-BMS-2018-045456

PATIENT
  Age: 75 Year
  Sex: Female

DRUGS (1)
  1. ABATACEPT [Suspect]
     Active Substance: ABATACEPT
     Indication: RHEUMATOID ARTHRITIS
     Dosage: 750 MG, Q4WK
     Route: 042
     Dates: start: 20080228

REACTIONS (9)
  - Cholecystitis [Recovering/Resolving]
  - Nausea [Unknown]
  - Cough [Unknown]
  - Herpes zoster [Unknown]
  - Abdominal pain [Unknown]
  - Diarrhoea [Unknown]
  - Rash [Unknown]
  - Gastroenteritis viral [Recovered/Resolved]
  - Influenza [Unknown]

NARRATIVE: CASE EVENT DATE: 20180507
